FAERS Safety Report 13371829 (Version 2)
Quarter: 2017Q2

REPORT INFORMATION
  Report Type: Spontaneous
  Country: US (occurrence: US)
  Receive Date: 20170325
  Receipt Date: 20170412
  Transmission Date: 20170830
  Serious: No
  Sender: FDA-Public Use
  Company Number: US-MEDA-2017030038

PATIENT
  Sex: Female

DRUGS (2)
  1. SOMA [Suspect]
     Active Substance: CARISOPRODOL
     Indication: NERVOUSNESS
     Dates: start: 1987, end: 1987
  2. SOMA [Suspect]
     Active Substance: CARISOPRODOL
     Indication: ANXIETY
     Dates: start: 1987, end: 1987

REACTIONS (2)
  - Rash [Recovered/Resolved]
  - Off label use [Recovered/Resolved]

NARRATIVE: CASE EVENT DATE: 1987
